FAERS Safety Report 4458055-4 (Version None)
Quarter: 2004Q3

REPORT INFORMATION
  Report Type: 
  Country: None (occurrence: None)
  Receive Date: 20040922
  Receipt Date: 20040907
  Transmission Date: 20050211
  Serious: Yes (Other)
  Sender: FDA-Public Use
  Company Number: DE_040914256

PATIENT
  Sex: Female

DRUGS (1)
  1. ZYPREXA [Suspect]
     Indication: SCHIZOPHRENIA, PARANOID TYPE
     Dates: start: 19990810, end: 20040901

REACTIONS (5)
  - DRUG ABUSER [None]
  - HEPATIC CIRRHOSIS [None]
  - HEPATIC FAILURE [None]
  - HEPATITIS C [None]
  - PREGNANCY [None]
